FAERS Safety Report 9921408 (Version 2)
Quarter: 2014Q1

REPORT INFORMATION
  Report Type: Spontaneous
  Country: US (occurrence: US)
  Receive Date: 20140225
  Receipt Date: 20140312
  Transmission Date: 20141002
  Serious: Yes (Death)
  Sender: FDA-Public Use
  Company Number: US-009507513-1402USA010468

PATIENT
  Age: 62 Year
  Sex: Male

DRUGS (2)
  1. VYTORIN [Suspect]
     Indication: BLOOD CHOLESTEROL INCREASED
     Dosage: 10/40 MG UNSPECIFIED
     Route: 048
  2. IMDUR [Suspect]
     Dosage: UNK
     Route: 048

REACTIONS (1)
  - Cardiac disorder [Fatal]
